FAERS Safety Report 16525153 (Version 1)
Quarter: 2019Q3

REPORT INFORMATION
  Report Type: Report from Study
  Country: PA (occurrence: PA)
  Receive Date: 20190702
  Receipt Date: 20190702
  Transmission Date: 20191004
  Serious: Yes (Other)
  Sender: FDA-Public Use
  Company Number: PHHY2019PA150883

PATIENT
  Age: 46 Year
  Sex: Female

DRUGS (1)
  1. SANDOSTATIN LAR DEPOT [Suspect]
     Active Substance: OCTREOTIDE ACETATE
     Indication: PRODUCT USED FOR UNKNOWN INDICATION
     Dosage: 20 MG, UNK
     Route: 065

REACTIONS (10)
  - Benign neoplasm [Unknown]
  - Faeces discoloured [Unknown]
  - Erythema [Unknown]
  - Anal incontinence [Unknown]
  - Pain [Unknown]
  - Dyspnoea [Unknown]
  - Hepatic mass [Unknown]
  - Palpitations [Unknown]
  - Headache [Unknown]
  - Syncope [Unknown]
